FAERS Safety Report 26121460 (Version 1)
Quarter: 2025Q4

REPORT INFORMATION
  Report Type: Spontaneous
  Country: US (occurrence: US)
  Receive Date: 20251204
  Receipt Date: 20251204
  Transmission Date: 20260117
  Serious: Yes (Hospitalization)
  Sender: MYLAN
  Company Number: US-MYLANLABS-2025M1102828

PATIENT
  Age: 68 Year
  Sex: Female

DRUGS (16)
  1. VALPROIC ACID [Suspect]
     Active Substance: VALPROIC ACID
     Indication: Catatonia
     Dosage: UNK
  2. VALPROIC ACID [Suspect]
     Active Substance: VALPROIC ACID
     Dosage: UNK
     Route: 042
  3. VALPROIC ACID [Suspect]
     Active Substance: VALPROIC ACID
     Dosage: UNK
     Route: 042
  4. VALPROIC ACID [Suspect]
     Active Substance: VALPROIC ACID
     Dosage: UNK
  5. AMANTADINE [Suspect]
     Active Substance: AMANTADINE
     Indication: Catatonia
     Dosage: UNK
  6. AMANTADINE [Suspect]
     Active Substance: AMANTADINE
     Dosage: UNK
     Route: 048
  7. AMANTADINE [Suspect]
     Active Substance: AMANTADINE
     Dosage: UNK
     Route: 048
  8. AMANTADINE [Suspect]
     Active Substance: AMANTADINE
     Dosage: UNK
  9. SERTRALINE [Concomitant]
     Active Substance: SERTRALINE HYDROCHLORIDE
     Indication: Depression
     Dosage: 50 MILLIGRAM
  10. SERTRALINE [Concomitant]
     Active Substance: SERTRALINE HYDROCHLORIDE
     Dosage: 50 MILLIGRAM
     Route: 065
  11. SERTRALINE [Concomitant]
     Active Substance: SERTRALINE HYDROCHLORIDE
     Dosage: 50 MILLIGRAM
     Route: 065
  12. SERTRALINE [Concomitant]
     Active Substance: SERTRALINE HYDROCHLORIDE
     Dosage: 50 MILLIGRAM
  13. MIRTAZAPINE [Concomitant]
     Active Substance: MIRTAZAPINE
     Indication: Depression
     Dosage: 15 MILLIGRAM
  14. MIRTAZAPINE [Concomitant]
     Active Substance: MIRTAZAPINE
     Dosage: 15 MILLIGRAM
     Route: 065
  15. MIRTAZAPINE [Concomitant]
     Active Substance: MIRTAZAPINE
     Dosage: 15 MILLIGRAM
     Route: 065
  16. MIRTAZAPINE [Concomitant]
     Active Substance: MIRTAZAPINE
     Dosage: 15 MILLIGRAM

REACTIONS (2)
  - Drug ineffective for unapproved indication [Unknown]
  - Product use in unapproved indication [Unknown]
